FAERS Safety Report 5731015-9 (Version None)
Quarter: 2008Q2

REPORT INFORMATION
  Report Type: 
  Country: None (occurrence: None)
  Receive Date: 20080505
  Receipt Date: 20080425
  Transmission Date: 20081010
  Serious: Yes (Death, Hospitalization, Other)
  Sender: FDA-Public Use
  Company Number: 163-21880-08021731

PATIENT
  Age: 55 Year
  Sex: Female

DRUGS (21)
  1. REVLIMID [Suspect]
     Indication: MULTIPLE MYELOMA
     Dosage: 25 MG, 21 DAYS ON AND 7 DAYS OFF, ORAL; 25- 10MG, ORAL
     Route: 048
     Dates: start: 20071005, end: 20080227
  2. REVLIMID [Suspect]
     Indication: MULTIPLE MYELOMA
     Dosage: 25 MG, 21 DAYS ON AND 7 DAYS OFF, ORAL; 25- 10MG, ORAL
     Route: 048
     Dates: start: 20071004
  3. XANAX [Concomitant]
  4. PROTONIX [Concomitant]
  5. RESTORIL [Concomitant]
  6. DILAUDID PCA PUMP (HYDROMORPHONE HYDROCHLORIDE) [Concomitant]
  7. ADVAIR DISKUS        (SERETIDE MITE) [Concomitant]
  8. CLONAZEPAM [Concomitant]
  9. MIRALAX [Concomitant]
  10. PANCRELIPASE (PANCRELIPASE) [Concomitant]
  11. SOL-MEDROL (METHYLPREDNISOLONE SODIUM SUCCINATE) [Concomitant]
  12. STEROIDS (STEROID ANTIBACTERIALS) [Concomitant]
  13. PREDNISONE TAB [Concomitant]
  14. TEMAZEPAM [Concomitant]
  15. REGLAN [Concomitant]
  16. METAMUCIL (METAMUCIL ^PROCTER + GAMBLE^) [Concomitant]
  17. PANCREASE (PANCRELIPASE) [Concomitant]
  18. BENTYL [Concomitant]
  19. LEVAQUIN [Concomitant]
  20. GLYBURIDE [Concomitant]
  21. ATROVENT [Concomitant]

REACTIONS (35)
  - ABDOMINAL PAIN [None]
  - ABDOMINAL PAIN UPPER [None]
  - ACUTE HEPATIC FAILURE [None]
  - ASTHENIA [None]
  - ASTHMA [None]
  - BACK PAIN [None]
  - BILE DUCT OBSTRUCTION [None]
  - BRONCHITIS [None]
  - CHEST PAIN [None]
  - CHRONIC OBSTRUCTIVE PULMONARY DISEASE [None]
  - CONDITION AGGRAVATED [None]
  - CONSTIPATION [None]
  - DEHYDRATION [None]
  - FEBRILE NEUTROPENIA [None]
  - FIBRIN D DIMER INCREASED [None]
  - GAIT DISTURBANCE [None]
  - GASTROOESOPHAGEAL REFLUX DISEASE [None]
  - HYPERGLYCAEMIA [None]
  - HYPOKALAEMIA [None]
  - HYPONATRAEMIA [None]
  - ILEUS [None]
  - MALIGNANT NEOPLASM PROGRESSION [None]
  - NAUSEA [None]
  - NO THERAPEUTIC RESPONSE [None]
  - NON-CARDIAC CHEST PAIN [None]
  - PANCREATIC CARCINOMA [None]
  - PANCYTOPENIA [None]
  - PLASMACYTOMA [None]
  - PLEURITIC PAIN [None]
  - PNEUMONIA [None]
  - SELF-MEDICATION [None]
  - SEPSIS [None]
  - SYSTEMIC INFLAMMATORY RESPONSE SYNDROME [None]
  - VOMITING [None]
  - WRONG DRUG ADMINISTERED [None]
